FAERS Safety Report 9539414 (Version 2)
Quarter: 2014Q2

REPORT INFORMATION
  Report Type: Report from Study
  Country: DE (occurrence: DE)
  Receive Date: 20130920
  Receipt Date: 20140501
  Transmission Date: 20141212
  Serious: Yes (Hospitalization)
  Sender: FDA-Public Use
  Company Number: DE-ROCHE-1277466

PATIENT
  Age: 52 Year
  Sex: Male
  Weight: 85 kg

DRUGS (1)
  1. PEG-INTERFERON ALFA 2A [Suspect]
     Indication: MALIGNANT MELANOMA
     Dosage: LAST DOSE PRIOR TO SAE PEG-INTERFERON ALFA 2A ON 03/FEB/2006
     Route: 058
     Dates: start: 20050601

REACTIONS (2)
  - Intervertebral disc protrusion [Recovered/Resolved]
  - Intervertebral disc protrusion [Recovered/Resolved]
